FAERS Safety Report 19566828 (Version 1)
Quarter: 2021Q3

REPORT INFORMATION
  Report Type: Other
  Country: US (occurrence: US)
  Receive Date: 20210716
  Receipt Date: 20210716
  Transmission Date: 20211014
  Serious: Yes (Hospitalization, Other)
  Sender: FDA-Public Use
  Company Number: US-ROCHE-2863300

PATIENT
  Sex: Male

DRUGS (1)
  1. VALCYTE [Suspect]
     Active Substance: VALGANCICLOVIR HYDROCHLORIDE
     Indication: LUNG TRANSPLANT
     Dosage: TAKE 450MG (9ML) PO ONCE DAILY W/ DINNER?QD
     Route: 048

REACTIONS (3)
  - Off label use [Unknown]
  - Dysphagia [Unknown]
  - Cytomegalovirus infection [Unknown]
